FAERS Safety Report 7216356-0 (Version None)
Quarter: 2011Q1

REPORT INFORMATION
  Report Type: 
  Country: None (occurrence: None)
  Receive Date: 20110107
  Receipt Date: 20110105
  Transmission Date: 20110831
  Serious: Yes (Death, Other)
  Sender: FDA-Public Use
  Company Number: JP-JNJFOC-20110100180

PATIENT
  Age: 29 Year
  Sex: Female

DRUGS (10)
  1. MICAFUNGIN [Suspect]
     Indication: OBLITERATIVE BRONCHIOLITIS
     Route: 065
  2. MICAFUNGIN [Suspect]
     Indication: PULMONARY NECROSIS
     Route: 065
  3. ITRACONAZOLE [Suspect]
     Indication: OBLITERATIVE BRONCHIOLITIS
     Route: 065
  4. AMPHOTERICIN B [Suspect]
     Indication: OBLITERATIVE BRONCHIOLITIS
     Route: 065
  5. PREDNISOLONE [Suspect]
     Indication: HYPOXIA
     Route: 048
  6. PREDNISOLONE [Suspect]
     Dosage: 3 MONTHS LATER DOSAGE REDUCED
     Route: 048
  7. AMPHOTERICIN B [Suspect]
     Indication: PULMONARY NECROSIS
     Route: 065
  8. ITRACONAZOLE [Suspect]
     Indication: BRONCHOPULMONARY ASPERGILLOSIS
     Route: 065
  9. VORICONAZOLE [Suspect]
     Indication: PULMONARY NECROSIS
     Route: 065
  10. VORICONAZOLE [Suspect]
     Indication: OBLITERATIVE BRONCHIOLITIS
     Route: 065

REACTIONS (2)
  - DRUG RESISTANCE [None]
  - BRONCHOPULMONARY ASPERGILLOSIS [None]
